FAERS Safety Report 25859619 (Version 3)
Quarter: 2025Q4

REPORT INFORMATION
  Report Type: Spontaneous
  Country: US (occurrence: US)
  Receive Date: 20250929
  Receipt Date: 20251104
  Transmission Date: 20260117
  Serious: No
  Sender: DR REDDYS
  Company Number: US-DRL-USA-USA/2025/08/012942

PATIENT
  Age: 53 Year
  Sex: Female
  Weight: 90 kg

DRUGS (2)
  1. SUMATRIPTAN SUCCINATE [Suspect]
     Active Substance: SUMATRIPTAN SUCCINATE
     Indication: Migraine
     Dosage: STRENGTH: 6 MG/0.5ML ?1ST BOX WITH 1 AUTOINJECTOR.?DIRECTION FOR USE: INJECT ZERO-POINT FIVE ML INTO
     Route: 058
  2. SUMATRIPTAN SUCCINATE [Suspect]
     Active Substance: SUMATRIPTAN SUCCINATE
     Dosage: STRENGTH: 6 MG/0.5ML?2ND BOX WITH 2 AUTOINJECTORS?DIRECTION FOR USE: INJECT ZERO-POINT FIVE ML INTO
     Route: 058

REACTIONS (5)
  - Product dose omission issue [Unknown]
  - Product use issue [Unknown]
  - Device malfunction [Unknown]
  - Accidental exposure to product [Unknown]
  - Device breakage [Unknown]
